FAERS Safety Report 9198988 (Version 1)
Quarter: 2013Q1

REPORT INFORMATION
  Report Type: Spontaneous
  Country: NL (occurrence: NL)
  Receive Date: 20130329
  Receipt Date: 20130329
  Transmission Date: 20140127
  Serious: Yes (Other)
  Sender: FDA-Public Use
  Company Number: NL-009507513-1303NLD012530

PATIENT
  Age: 37 Year
  Sex: Female

DRUGS (3)
  1. NUVARING [Suspect]
     Indication: CONTRACEPTION
     Dosage: DOSE: TIMES PER CYCLICAL, 1 RING FOR 3 WEEKS, THEN 1 WEEK STOP
     Route: 067
     Dates: start: 20080714
  2. METRONIDAZOLE [Interacting]
     Dosage: 2 TIMES A DAY 1 PIECE (S) ADDITIONAL INFO: CURE 10 DAYS
     Dates: start: 20130122
  3. BIOCLIN MULTIGYN GEL [Concomitant]
     Dosage: ADDITIONAL INFO: ACCORDING TO LEAFLET
     Dates: start: 20130123

REACTIONS (3)
  - Abortion induced [Recovered/Resolved with Sequelae]
  - Unintended pregnancy [Recovered/Resolved with Sequelae]
  - Drug interaction [Recovered/Resolved with Sequelae]
